FAERS Safety Report 15155768 (Version 1)
Quarter: 2018Q3

REPORT INFORMATION
  Report Type: Spontaneous
  Country: DE (occurrence: DE)
  Receive Date: 20180717
  Receipt Date: 20180717
  Transmission Date: 20181010
  Serious: Yes (Other)
  Sender: FDA-Public Use
  Company Number: DE-US WORLDMEDS, LLC-STA_00018782

PATIENT
  Sex: Male
  Weight: 79 kg

DRUGS (6)
  1. NEUPRO 8MG [Concomitant]
     Route: 062
  2. QUETIAPIN [Concomitant]
     Active Substance: QUETIAPINE
     Route: 048
  3. RIVOTRIL [Concomitant]
     Active Substance: CLONAZEPAM
     Route: 048
  4. STALEVO 75/18,75/200 [Concomitant]
     Route: 048
  5. APOMORPHINE HYDROCHLORIDE [Suspect]
     Active Substance: APOMORPHINE HYDROCHLORIDE
     Indication: PARKINSON^S DISEASE
     Route: 058
     Dates: start: 201503
  6. MOVICOL [Concomitant]
     Active Substance: POLYETHYLENE GLYCOL 3350\POTASSIUM CHLORIDE\SODIUM BICARBONATE\SODIUM CHLORIDE
     Route: 048

REACTIONS (1)
  - Application site necrosis [Not Recovered/Not Resolved]
